FAERS Safety Report 21639526 (Version 5)
Quarter: 2025Q3

REPORT INFORMATION
  Report Type: Report from Study
  Country: US (occurrence: US)
  Receive Date: 20221124
  Receipt Date: 20250710
  Transmission Date: 20251020
  Serious: Yes (Death, Hospitalization, Other)
  Sender: JAZZ
  Company Number: US-GW PHARMA-202109USGW04737

PATIENT

DRUGS (3)
  1. EPIDIOLEX [Suspect]
     Active Substance: CANNABIDIOL
     Indication: Lennox-Gastaut syndrome
     Dosage: 6 MILLILITER, BID
     Dates: start: 201901
  2. EPIDIOLEX [Suspect]
     Active Substance: CANNABIDIOL
     Dates: start: 201901
  3. EPIDIOLEX [Suspect]
     Active Substance: CANNABIDIOL
     Dates: start: 201901

REACTIONS (4)
  - Death [Fatal]
  - Hospitalisation [Unknown]
  - Emergency care [Unknown]
  - Constipation [Unknown]

NARRATIVE: CASE EVENT DATE: 20210101
